FAERS Safety Report 18365784 (Version 6)
Quarter: 2022Q1

REPORT INFORMATION
  Report Type: Spontaneous
  Country: US (occurrence: US)
  Receive Date: 20201009
  Receipt Date: 20220216
  Transmission Date: 20220423
  Serious: No
  Sender: FDA-Public Use
  Company Number: US-PFIZER INC-2020381605

PATIENT
  Age: 3 Year
  Sex: Female

DRUGS (2)
  1. GENOTROPIN [Suspect]
     Active Substance: SOMATROPIN
     Dosage: 0.2 MG, ALTERNATE DAY (ALTERNATING 0.2 MG AND 0.4 MG)
     Dates: start: 2018
  2. GENOTROPIN [Suspect]
     Active Substance: SOMATROPIN
     Dosage: 0.4 MG, ALTERNATE DAY (ALTERNATING 0.2 MG AND 0.4 MG)
     Dates: start: 2018

REACTIONS (3)
  - Device use error [Unknown]
  - Drug dose omission by device [Unknown]
  - Device breakage [Unknown]
